FAERS Safety Report 5149445-5 (Version None)
Quarter: 2006Q4

REPORT INFORMATION
  Report Type: 
  Country: None (occurrence: None)
  Receive Date: 20061113
  Receipt Date: 20060118
  Transmission Date: 20070319
  Serious: No
  Sender: FDA-Public Use
  Company Number: US-GLAXOSMITHKLINE-A0589891A

PATIENT
  Sex: Female

DRUGS (1)
  1. COREG [Suspect]
     Route: 048
     Dates: start: 20050101

REACTIONS (1)
  - FLAT AFFECT [None]
